FAERS Safety Report 6690632-2 (Version None)
Quarter: 2010Q2

REPORT INFORMATION
  Report Type: 
  Country: None (occurrence: None)
  Receive Date: 20100421
  Receipt Date: 20100413
  Transmission Date: 20101027
  Serious: Yes (Hospitalization)
  Sender: FDA-Public Use
  Company Number: DE-ABBOTT-10P-062-0631085-00

PATIENT
  Sex: Female
  Weight: 96.5 kg

DRUGS (13)
  1. ZEMPLAR [Suspect]
     Indication: SECONDARY HYPERTHYROIDISM
     Dates: start: 20090401, end: 20100215
  2. MARCUMAR [Concomitant]
     Indication: ATRIAL FIBRILLATION
  3. CINACALCET HYDROCHLORIDE [Concomitant]
     Indication: SECONDARY HYPERTHYROIDISM
     Dates: start: 20090801
  4. CARMEN [Concomitant]
     Indication: DRUG USE FOR UNKNOWN INDICATION
  5. DOXAZOSIN [Concomitant]
     Indication: DRUG USE FOR UNKNOWN INDICATION
  6. MOXONIDIN [Concomitant]
     Indication: DRUG USE FOR UNKNOWN INDICATION
  7. XIPAMID [Concomitant]
     Indication: DRUG USE FOR UNKNOWN INDICATION
  8. TORSEMIDE [Concomitant]
     Indication: DRUG USE FOR UNKNOWN INDICATION
  9. LOCOL [Concomitant]
     Indication: DRUG USE FOR UNKNOWN INDICATION
  10. TRAMADOL HCL [Concomitant]
     Indication: DRUG USE FOR UNKNOWN INDICATION
  11. DIPYRONE TAB [Concomitant]
     Indication: DRUG USE FOR UNKNOWN INDICATION
  12. EZETROL [Concomitant]
     Indication: DRUG USE FOR UNKNOWN INDICATION
  13. SIFROL [Concomitant]
     Indication: DRUG USE FOR UNKNOWN INDICATION

REACTIONS (2)
  - CALCIPHYLAXIS [None]
  - SOFT TISSUE NECROSIS [None]
